FAERS Safety Report 10945265 (Version 3)
Quarter: 2015Q2

REPORT INFORMATION
  Report Type: Spontaneous
  Country: CH (occurrence: CH)
  Receive Date: 20150323
  Receipt Date: 20150511
  Transmission Date: 20150821
  Serious: Yes (Hospitalization, Other)
  Sender: FDA-Public Use
  Company Number: CH-SA-2015SA032984

PATIENT
  Age: 37 Year
  Sex: Female

DRUGS (2)
  1. AUBAGIO [Suspect]
     Active Substance: TERIFLUNOMIDE
     Indication: MULTIPLE SCLEROSIS
     Route: 048
     Dates: start: 201403
  2. YIRA [Concomitant]
     Indication: ORAL CONTRACEPTION
     Route: 048
     Dates: start: 201403, end: 201407

REACTIONS (2)
  - Pregnancy on contraceptive [Unknown]
  - Exposure during pregnancy [Unknown]
